FAERS Safety Report 7536359-6 (Version None)
Quarter: 2011Q2

REPORT INFORMATION
  Report Type: 
  Country: None (occurrence: None)
  Receive Date: 20110608
  Receipt Date: 20110608
  Transmission Date: 20111010
  Serious: No
  Sender: FDA-Public Use
  Company Number: None

PATIENT
  Age: 66 Month
  Sex: Male
  Weight: 80.7403 kg

DRUGS (2)
  1. PROAIR HFA [Concomitant]
  2. CIALIS [Suspect]
     Indication: ERECTILE DYSFUNCTION
     Dosage: 1/2 OF TABLET RANDON
     Dates: start: 20070101, end: 20110101

REACTIONS (1)
  - DEAFNESS UNILATERAL [None]
